FAERS Safety Report 24078415 (Version 1)
Quarter: 2024Q3

REPORT INFORMATION
  Report Type: Report from Study
  Country: FR (occurrence: FR)
  Receive Date: 20240711
  Receipt Date: 20240711
  Transmission Date: 20241016
  Serious: Yes (Death, Other)
  Sender: MYLAN
  Company Number: FR-MYLANLABS-2023M1090428

PATIENT
  Age: 66 Year
  Sex: Male

DRUGS (12)
  1. GEMCITABINE [Suspect]
     Active Substance: GEMCITABINE
     Indication: Mixed hepatocellular cholangiocarcinoma
     Dosage: UNK
     Route: 065
  2. GEMCITABINE [Suspect]
     Active Substance: GEMCITABINE
     Indication: Metastatic neoplasm
  3. CISPLATIN [Suspect]
     Active Substance: CISPLATIN
     Indication: Mixed hepatocellular cholangiocarcinoma
     Dosage: UNK
     Route: 065
  4. CISPLATIN [Suspect]
     Active Substance: CISPLATIN
     Indication: Metastatic neoplasm
  5. FLUOROURACIL [Suspect]
     Active Substance: FLUOROURACIL
     Indication: Mixed hepatocellular cholangiocarcinoma
     Dosage: UNK
     Route: 065
  6. FLUOROURACIL [Suspect]
     Active Substance: FLUOROURACIL
     Indication: Metastatic neoplasm
  7. OXALIPLATIN [Suspect]
     Active Substance: OXALIPLATIN
     Indication: Mixed hepatocellular cholangiocarcinoma
     Dosage: UNK
     Route: 065
  8. OXALIPLATIN [Suspect]
     Active Substance: OXALIPLATIN
     Indication: Metastatic neoplasm
  9. BEVACIZUMAB [Suspect]
     Active Substance: BEVACIZUMAB
     Indication: Mixed hepatocellular cholangiocarcinoma
     Dosage: 15 MILLIGRAM/KILOGRAM, Q3W
     Route: 042
  10. BEVACIZUMAB [Suspect]
     Active Substance: BEVACIZUMAB
     Indication: Metastatic neoplasm
  11. ATEZOLIZUMAB [Suspect]
     Active Substance: ATEZOLIZUMAB
     Indication: Mixed hepatocellular cholangiocarcinoma
     Dosage: 1200 MILLIGRAM, Q3W
     Route: 042
  12. ATEZOLIZUMAB [Suspect]
     Active Substance: ATEZOLIZUMAB
     Indication: Metastatic neoplasm

REACTIONS (2)
  - Disease progression [Fatal]
  - Drug ineffective [Fatal]
